FAERS Safety Report 19518866 (Version 2)
Quarter: 2021Q3

REPORT INFORMATION
  Report Type: Spontaneous
  Country: US (occurrence: US)
  Receive Date: 20210712
  Receipt Date: 20210826
  Transmission Date: 20211014
  Serious: Yes (Other)
  Sender: FDA-Public Use
  Company Number: US-MYLANLABS-2021M1039637

PATIENT
  Sex: Female
  Weight: 73 kg

DRUGS (9)
  1. SINEMET [Concomitant]
     Active Substance: CARBIDOPA\LEVODOPA
     Dosage: UNK
  2. REDNISONE [Concomitant]
     Indication: RHEUMATOID ARTHRITIS
     Dosage: UNK
  3. FENTANYL TRANSDERMAL SYSTEM [Suspect]
     Active Substance: FENTANYL
     Indication: RHEUMATOID ARTHRITIS
     Dosage: 25 MCG/HR FENTANYL FOR 72 HOURS
     Route: 062
  4. TEMAZEPAM. [Concomitant]
     Active Substance: TEMAZEPAM
     Dosage: UNK
  5. PROZAC [Concomitant]
     Active Substance: FLUOXETINE HYDROCHLORIDE
     Dosage: UNK
  6. PROTONIX                           /00661201/ [Concomitant]
     Active Substance: OMEPRAZOLE
     Dosage: UNK
  7. FENTANYL TRANSDERMAL SYSTEM [Suspect]
     Active Substance: FENTANYL
     Indication: OSTEOARTHRITIS
     Dosage: 25 MICROGRAM, Q3D,1 PATCH EVERY 3 DAYS
     Route: 062
  8. TYLENOL [Concomitant]
     Active Substance: ACETAMINOPHEN
     Indication: PAIN
     Dosage: UNK
  9. ARIPRAZOLE [Concomitant]
     Active Substance: ARIPIPRAZOLE
     Dosage: UNK

REACTIONS (1)
  - Drug ineffective [Recovered/Resolved]
